FAERS Safety Report 20556301 (Version 5)
Quarter: 2023Q1

REPORT INFORMATION
  Report Type: Report from Study
  Country: CH (occurrence: None)
  Receive Date: 20220305
  Receipt Date: 20230120
  Transmission Date: 20230418
  Serious: Yes (Hospitalization)
  Sender: FDA-Public Use
  Company Number: CH-ROCHE-3037145

PATIENT
  Age: 69 Year
  Sex: Male
  Weight: 75 kg

DRUGS (21)
  1. TIRAGOLUMAB [Suspect]
     Active Substance: TIRAGOLUMAB
     Indication: Non-small cell lung cancer metastatic
     Dosage: ON 04/JAN/2022 HE RECEIVED MOST RECENT DOSE OF TIRAGOLUMAB PRIOR TO AE/SAE.
     Route: 042
     Dates: start: 20210514
  2. ATEZOLIZUMAB [Suspect]
     Active Substance: ATEZOLIZUMAB
     Indication: Non-small cell lung cancer metastatic
     Dosage: START DATE OF MOST RECENT DOSE OF STUDY DRUG PRIOR TO SAE:04/JAN/2022
     Route: 041
     Dates: start: 20210514
  3. ATEZOLIZUMAB [Suspect]
     Active Substance: ATEZOLIZUMAB
     Indication: Non-small cell lung cancer metastatic
     Dosage: ON 04/JAN/2022, HE RECEIVED MOST RECENT DOSE OF PEMBROLIZUMAB PRIOR TO SAE.
     Route: 041
     Dates: start: 20210514
  4. CARBOPLATIN [Suspect]
     Active Substance: CARBOPLATIN
     Indication: Non-small cell lung cancer metastatic
     Route: 042
     Dates: start: 20210514
  5. PEMETREXED [Suspect]
     Active Substance: PEMETREXED
     Indication: Non-small cell lung cancer metastatic
     Dosage: DOSE LAST STUDY DRUG ADMIN PRIOR AE/SAE: 750 MG?ON 22/NOV/2021, RECEIVED MOST RECENT DOSE OF STUDY D
     Route: 042
     Dates: start: 20210514
  6. AMLODIPINE [Concomitant]
     Active Substance: AMLODIPINE BESYLATE
  7. METAMIZOLE [Concomitant]
     Active Substance: METAMIZOLE
  8. ANORO ELLIPTA [Concomitant]
     Active Substance: UMECLIDINIUM BROMIDE\VILANTEROL TRIFENATATE
  9. ARANESP [Concomitant]
     Active Substance: DARBEPOETIN ALFA
  10. VITAMIN D3 [Concomitant]
     Active Substance: CHOLECALCIFEROL
  11. CALCIUM\CHOLECALCIFEROL [Concomitant]
     Active Substance: CALCIUM\CHOLECALCIFEROL
  12. APIXABAN [Concomitant]
     Active Substance: APIXABAN
  13. FOLIC ACID [Concomitant]
     Active Substance: FOLIC ACID
  14. NEULASTA [Concomitant]
     Active Substance: PEGFILGRASTIM
  15. ARANESP [Concomitant]
     Active Substance: DARBEPOETIN ALFA
  16. NEO-MERCAZOLE [Concomitant]
     Active Substance: CARBIMAZOLE
  17. BISOPROLOL [Concomitant]
     Active Substance: BISOPROLOL
  18. PANTOPRAZOLE SODIUM [Concomitant]
     Active Substance: PANTOPRAZOLE SODIUM
  19. MAGNESIUM ASPARTATE HYDROCHLORIDE [Concomitant]
     Active Substance: MAGNESIUM ASPARTATE HYDROCHLORIDE
  20. XGEVA [Concomitant]
     Active Substance: DENOSUMAB
  21. DAFALGAN [Concomitant]
     Active Substance: ACETAMINOPHEN
     Indication: Back pain
     Route: 048
     Dates: start: 20210401

REACTIONS (1)
  - Colitis [Recovered/Resolved]

NARRATIVE: CASE EVENT DATE: 20220223
